FAERS Safety Report 11700400 (Version 2)
Quarter: 2015Q4

REPORT INFORMATION
  Report Type: Report from Study
  Country: BR (occurrence: BR)
  Receive Date: 20151105
  Receipt Date: 20151123
  Transmission Date: 20160304
  Serious: Yes (Hospitalization, Other)
  Sender: FDA-Public Use
  Company Number: PHHY2015BR142173

PATIENT
  Sex: Female
  Weight: 86 kg

DRUGS (1)
  1. EXFORGE HCT [Suspect]
     Active Substance: AMLODIPINE BESYLATE\HYDROCHLOROTHIAZIDE\VALSARTAN
     Indication: HYPERTENSION
     Dosage: 1 DF, QD
     Route: 065

REACTIONS (6)
  - Malaise [Unknown]
  - Hypothyroidism [Unknown]
  - Accident at home [Recovering/Resolving]
  - Blood pressure increased [Recovering/Resolving]
  - Tympanic membrane perforation [Unknown]
  - Tendon rupture [Recovered/Resolved]
